FAERS Safety Report 25575908 (Version 3)
Quarter: 2025Q3

REPORT INFORMATION
  Report Type: Spontaneous
  Country: US (occurrence: US)
  Receive Date: 20250718
  Receipt Date: 20250821
  Transmission Date: 20251021
  Serious: Yes (Hospitalization, Other)
  Sender: BAUSCH AND LOMB
  Company Number: US-BAUSCH-BH-2025-014676

PATIENT
  Age: 68 Year
  Sex: Female

DRUGS (2)
  1. PRIMIDONE [Suspect]
     Active Substance: PRIMIDONE
     Indication: Seizure
     Dosage: 2 TABLETS IN THE MORNING AND 1 TABLET AT NIGHT STARTED 4 YEARS AGO
     Route: 048
     Dates: start: 2021
  2. DILANTIN [Suspect]
     Active Substance: PHENYTOIN
     Indication: Seizure
     Dosage: 3 TIMES PER DAY
     Route: 065

REACTIONS (9)
  - Generalised tonic-clonic seizure [Not Recovered/Not Resolved]
  - Condition aggravated [Not Recovered/Not Resolved]
  - Ankle fracture [Recovering/Resolving]
  - Dizziness [Not Recovered/Not Resolved]
  - Tremor [Not Recovered/Not Resolved]
  - Amnesia [Not Recovered/Not Resolved]
  - Alopecia [Not Recovered/Not Resolved]
  - Drug ineffective [Unknown]
  - Intentional product misuse [Unknown]

NARRATIVE: CASE EVENT DATE: 20240101
